FAERS Safety Report 10664549 (Version 1)
Quarter: 2014Q4

REPORT INFORMATION
  Report Type: Spontaneous
  Country: US (occurrence: US)
  Receive Date: 20141219
  Receipt Date: 20141219
  Transmission Date: 20150529
  Serious: No
  Sender: FDA-Public Use
  Company Number: US-BAUSCH-BL-2014-004215

PATIENT
  Age: 71 Year
  Sex: Female
  Weight: 50.39 kg

DRUGS (3)
  1. LISINOPRIL. [Suspect]
     Active Substance: LISINOPRIL
     Indication: HYPERTENSION
     Dates: end: 201407
  2. ADVIL LIQUIGELS [Suspect]
     Active Substance: IBUPROFEN
     Indication: PAIN
     Route: 048
     Dates: end: 201407
  3. CARDIZEM [Suspect]
     Active Substance: DILTIAZEM HYDROCHLORIDE
     Indication: HYPERTENSION

REACTIONS (4)
  - Fatigue [Recovering/Resolving]
  - Hypertension [Unknown]
  - Incorrect dose administered [Unknown]
  - Hypotension [Recovering/Resolving]

NARRATIVE: CASE EVENT DATE: 201407
